FAERS Safety Report 7383969-5 (Version None)
Quarter: 2011Q1

REPORT INFORMATION
  Report Type: 
  Country: None (occurrence: None)
  Receive Date: 20110330
  Receipt Date: 20110317
  Transmission Date: 20110831
  Serious: Yes (Hospitalization)
  Sender: FDA-Public Use
  Company Number: US-WATSON-2011-03174

PATIENT
  Age: 11 Year
  Sex: Male
  Weight: 36 kg

DRUGS (10)
  1. TACROLIMUS [Suspect]
     Dosage: 4 MG, BID
  2. MYCOPHENOLATE MOFETIL [Concomitant]
     Indication: PRODUCT USED FOR UNKNOWN INDICATION
  3. NICARDIPINE HCL [Suspect]
     Indication: HYPERTENSION
     Dosage: 3 UG/KG/MIN, CONTINUOUS (6.6 MG/H)
     Route: 042
  4. TACROLIMUS [Suspect]
     Indication: IMMUNOSUPPRESSION
     Dosage: 3 MG, BID (0.08 MG/KG)
  5. PREDNISONE [Concomitant]
     Indication: PRODUCT USED FOR UNKNOWN INDICATION
  6. NICARDIPINE HCL [Suspect]
     Dosage: 20 MG, Q8H
     Route: 048
  7. TACROLIMUS [Suspect]
     Dosage: 2 MG, BID
  8. NIFEDIPINE [Concomitant]
     Indication: HYPERTENSION
     Dosage: 120 MG, BID
  9. METHYLPREDNISOLONE [Concomitant]
     Indication: PRODUCT USED FOR UNKNOWN INDICATION
     Route: 042
  10. THYMOGLOBULIN [Concomitant]
     Indication: PRODUCT USED FOR UNKNOWN INDICATION

REACTIONS (3)
  - TRANSPLANT REJECTION [None]
  - DRUG LEVEL INCREASED [None]
  - DRUG INTERACTION [None]
